FAERS Safety Report 5911571-8 (Version None)
Quarter: 2008Q4

REPORT INFORMATION
  Report Type: 
  Country: None (occurrence: None)
  Receive Date: 20081007
  Receipt Date: 20080930
  Transmission Date: 20090506
  Serious: Yes (Hospitalization)
  Sender: FDA-Public Use
  Company Number: AU-ALLERGAN-0812278US

PATIENT
  Sex: Male

DRUGS (4)
  1. PREDNISOLONE ACETATE [Suspect]
     Indication: IRIDOCYCLITIS
     Dosage: UNK, Q2HR (INTENSE)
     Route: 047
  2. PREDNISOLONE ACETATE [Suspect]
     Dosage: UNK, UNKNOWN
     Route: 047
  3. OFLOXACIN UNK [Suspect]
     Indication: IRIDOCYCLITIS
     Dosage: UNK, Q2HR
     Route: 047
  4. ALLOPURINOL [Concomitant]
     Indication: GOUT
     Dosage: UNK, QD

REACTIONS (2)
  - DRUG INEFFECTIVE [None]
  - KERATITIS [None]
